FAERS Safety Report 24795016 (Version 1)
Quarter: 2024Q4

REPORT INFORMATION
  Report Type: Spontaneous
  Country: US (occurrence: None)
  Receive Date: 20241231
  Receipt Date: 20241231
  Transmission Date: 20250115
  Serious: Yes (Disabling)
  Sender: Public
  Company Number: None

PATIENT
  Age: 54 Year
  Sex: Female
  Weight: 74.25 kg

DRUGS (7)
  1. TYRVAYA [Suspect]
     Active Substance: VARENICLINE TARTRATE
     Indication: Dry eye
     Dosage: FREQUENCY : TWICE A DAY;?OTHER ROUTE : SPRAYED INTO NOSTRIL;?
     Route: 050
     Dates: start: 20241001, end: 20241201
  2. D [Concomitant]
  3. B12 [Concomitant]
  4. COLLAGEN [Concomitant]
     Active Substance: COLLAGEN
  5. functional mushrooms [Concomitant]
  6. IRON [Concomitant]
     Active Substance: IRON
  7. OMEGA 3 [Concomitant]
     Active Substance: CAPSAICIN

REACTIONS (5)
  - Headache [None]
  - Nasal discomfort [None]
  - Sinus disorder [None]
  - Burning sensation [None]
  - Ocular hyperaemia [None]
